FAERS Safety Report 15048947 (Version 10)
Quarter: 2021Q2

REPORT INFORMATION
  Report Type: Other
  Country: CA (occurrence: CA)
  Receive Date: 20180622
  Receipt Date: 20210514
  Transmission Date: 20210716
  Serious: Yes (Hospitalization, Other)
  Sender: FDA-Public Use
  Company Number: CA-ROCHE-2113831

PATIENT
  Age: 66 Year
  Sex: Male
  Weight: 93.2 kg

DRUGS (17)
  1. VENTOLIN [Concomitant]
     Active Substance: ALBUTEROL SULFATE
  2. ESBRIET [Suspect]
     Active Substance: PIRFENIDONE
     Route: 048
     Dates: start: 201806, end: 20180609
  3. ESBRIET [Suspect]
     Active Substance: PIRFENIDONE
     Route: 048
     Dates: start: 2019, end: 20190417
  4. ESBRIET [Suspect]
     Active Substance: PIRFENIDONE
     Dosage: 2?2?1
     Route: 048
     Dates: start: 2020
  5. METRONIDAZOLE. [Concomitant]
     Active Substance: METRONIDAZOLE
     Indication: DIVERTICULITIS
  6. CIPROFLOXACIN. [Concomitant]
     Active Substance: CIPROFLOXACIN
     Indication: DIVERTICULITIS
  7. ESBRIET [Suspect]
     Active Substance: PIRFENIDONE
     Route: 048
     Dates: start: 20180526, end: 201806
  8. ESBRIET [Suspect]
     Active Substance: PIRFENIDONE
     Route: 048
     Dates: start: 20190418, end: 20200323
  9. CRESTOR [Concomitant]
     Active Substance: ROSUVASTATIN CALCIUM
  10. ESBRIET [Suspect]
     Active Substance: PIRFENIDONE
     Route: 048
     Dates: end: 202104
  11. ESBRIET [Suspect]
     Active Substance: PIRFENIDONE
     Route: 048
     Dates: start: 202104
  12. MORPHINE [Suspect]
     Active Substance: MORPHINE
     Indication: PRODUCT USED FOR UNKNOWN INDICATION
     Route: 065
  13. OXYCODONE [Suspect]
     Active Substance: OXYCODONE
     Indication: PRODUCT USED FOR UNKNOWN INDICATION
     Route: 065
  14. ESBRIET [Suspect]
     Active Substance: PIRFENIDONE
     Route: 048
     Dates: start: 20180410, end: 20180410
  15. ESBRIET [Suspect]
     Active Substance: PIRFENIDONE
     Indication: IDIOPATHIC PULMONARY FIBROSIS
     Route: 048
     Dates: start: 20180403, end: 20180409
  16. ESBRIET [Suspect]
     Active Substance: PIRFENIDONE
     Route: 048
     Dates: start: 20180610, end: 2019
  17. ESBRIET [Suspect]
     Active Substance: PIRFENIDONE
     Route: 048
     Dates: start: 202003, end: 2020

REACTIONS (26)
  - Pain [Not Recovered/Not Resolved]
  - Nausea [Unknown]
  - Weight increased [Unknown]
  - Fatigue [Recovering/Resolving]
  - Irritability [Not Recovered/Not Resolved]
  - Rheumatic disorder [Unknown]
  - Dizziness [Recovering/Resolving]
  - Chest pain [Recovering/Resolving]
  - Dyspepsia [Not Recovered/Not Resolved]
  - Hallucination [Unknown]
  - Fatigue [Not Recovered/Not Resolved]
  - Dyspnoea [Not Recovered/Not Resolved]
  - Lung disorder [Unknown]
  - Anxiety [Not Recovered/Not Resolved]
  - Asthenia [Unknown]
  - Photosensitivity reaction [Unknown]
  - Lung disorder [Not Recovered/Not Resolved]
  - Depression [Unknown]
  - Feeling hot [Unknown]
  - Abdominal pain upper [Unknown]
  - Dyspnoea [Unknown]
  - Depression [Recovering/Resolving]
  - Chest discomfort [Unknown]
  - Procedural pain [Unknown]
  - Diarrhoea [Not Recovered/Not Resolved]
  - Gastrooesophageal reflux disease [Recovering/Resolving]

NARRATIVE: CASE EVENT DATE: 20180403
